FAERS Safety Report 5444623-X (Version None)
Quarter: 2007Q3

REPORT INFORMATION
  Report Type: 
  Country: None (occurrence: None)
  Receive Date: 20070904
  Receipt Date: 20070904
  Transmission Date: 20080115
  Serious: Yes (Life-Threatening, Hospitalization)
  Sender: FDA-Public Use
  Company Number: None

PATIENT
  Age: 87 Year
  Sex: Male

DRUGS (1)
  1. LUCENTIS [Suspect]
     Dosage: 05.MG 0.05ML INTRAOCULAR
     Route: 031
     Dates: start: 20070424, end: 20070424

REACTIONS (1)
  - NO ADVERSE DRUG REACTION [None]
